FAERS Safety Report 7103883-X (Version None)
Quarter: 2010Q4

REPORT INFORMATION
  Report Type: 
  Country: None (occurrence: None)
  Receive Date: 20101115
  Receipt Date: 20101108
  Transmission Date: 20110411
  Serious: Yes (Hospitalization)
  Sender: FDA-Public Use
  Company Number: PHHY2010US67903

PATIENT
  Sex: Male
  Weight: 209 kg

DRUGS (2)
  1. EXJADE [Suspect]
     Indication: THALASSAEMIA
     Dosage: 500 MG, QD
     Dates: start: 20100513, end: 20100708
  2. EXJADE [Suspect]
     Indication: IRON OVERLOAD
     Dosage: 2000 MG, Q MORNING, 1000 MG Q EVENING
     Route: 048

REACTIONS (7)
  - DIARRHOEA [None]
  - DRUG HYPERSENSITIVITY [None]
  - ELECTROLYTE IMBALANCE [None]
  - HYPERSENSITIVITY [None]
  - HYPONATRAEMIA [None]
  - NAUSEA [None]
  - VOMITING [None]
